FAERS Safety Report 6357302-1 (Version None)
Quarter: 2009Q3

REPORT INFORMATION
  Report Type: 
  Country: None (occurrence: None)
  Receive Date: 20090916
  Receipt Date: 20090908
  Transmission Date: 20100115
  Serious: Yes (Other)
  Sender: FDA-Public Use
  Company Number: PHHY2009GB39097

PATIENT
  Sex: Male

DRUGS (1)
  1. SLOW-K [Suspect]
     Dosage: 2 DF, QD

REACTIONS (1)
  - GASTROINTESTINAL HAEMORRHAGE [None]
